FAERS Safety Report 26166040 (Version 1)
Quarter: 2025Q4

REPORT INFORMATION
  Report Type: Spontaneous
  Country: US (occurrence: US)
  Receive Date: 20251216
  Receipt Date: 20251216
  Transmission Date: 20260119
  Serious: Yes (Other)
  Sender: GENMAB
  Company Number: US-GENMAB-2025-04083

PATIENT

DRUGS (1)
  1. EPKINLY [Suspect]
     Active Substance: EPCORITAMAB-BYSP
     Indication: Follicular lymphoma refractory
     Dosage: UNK
     Route: 065

REACTIONS (1)
  - Follicular lymphoma [Unknown]
